FAERS Safety Report 25164951 (Version 2)
Quarter: 2025Q2

REPORT INFORMATION
  Report Type: Spontaneous
  Country: US (occurrence: US)
  Receive Date: 20250406
  Receipt Date: 20250417
  Transmission Date: 20250716
  Serious: Yes (Other)
  Sender: BAUSCH AND LOMB
  Company Number: US-BAUSCHBL-2025BNL005516

PATIENT
  Age: 86 Year
  Sex: Female
  Weight: 67.58 kg

DRUGS (4)
  1. MIEBO [Suspect]
     Active Substance: PERFLUOROHEXYLOCTANE
     Indication: Dry eye
     Route: 047
     Dates: start: 20250210, end: 20250319
  2. MINERALS\VITAMINS [Suspect]
     Active Substance: MINERALS\VITAMINS
     Indication: Product used for unknown indication
     Route: 048
     Dates: start: 2023
  3. REFRESH CLASSIC [Concomitant]
     Active Substance: POLYVINYL ALCOHOL\POVIDONE
     Indication: Dry eye
     Dosage: TWO WEEKS
     Route: 065
     Dates: start: 2025, end: 2025
  4. MEGA 3 [Concomitant]
     Indication: Product used for unknown indication
     Route: 065

REACTIONS (13)
  - Nephrolithiasis [Unknown]
  - Visual impairment [Unknown]
  - Vision blurred [Recovered/Resolved]
  - Condition aggravated [Recovered/Resolved]
  - Eye pain [Recovered/Resolved]
  - Abdominal discomfort [Recovered/Resolved]
  - Ill-defined disorder [Recovered/Resolved]
  - Gas poisoning [Recovered/Resolved]
  - Dysstasia [Recovered/Resolved]
  - Chest pain [Recovered/Resolved]
  - Asthenia [Recovered/Resolved]
  - Disorientation [Recovered/Resolved]
  - Inappropriate schedule of product administration [Unknown]

NARRATIVE: CASE EVENT DATE: 20250101
